FAERS Safety Report 5828920-1 (Version None)
Quarter: 2008Q3

REPORT INFORMATION
  Report Type: 
  Country: None (occurrence: None)
  Receive Date: 20080731
  Receipt Date: 20080724
  Transmission Date: 20090109
  Serious: Yes (Other)
  Sender: FDA-Public Use
  Company Number: FR-JNJFOC-20080701388

PATIENT
  Sex: Male
  Weight: 75 kg

DRUGS (4)
  1. RISPERDAL [Suspect]
     Indication: PSYCHOTIC DISORDER
     Route: 048
  2. LOXAPINE HCL [Suspect]
     Indication: AGITATION
     Route: 048
  3. PARKINANE [Concomitant]
  4. MOVICOL [Concomitant]

REACTIONS (1)
  - LEUKOPENIA [None]
